FAERS Safety Report 14586155 (Version 1)
Quarter: 2018Q1

REPORT INFORMATION
  Report Type: Spontaneous
  Country: US (occurrence: US)
  Receive Date: 20180301
  Receipt Date: 20180301
  Transmission Date: 20180509
  Serious: No
  Sender: FDA-Public Use
  Company Number: US-009507513-1802USA013711

PATIENT
  Age: 16 Year
  Sex: Female

DRUGS (1)
  1. NEXPLANON [Suspect]
     Active Substance: ETONOGESTREL
     Indication: CONTRACEPTION
     Dosage: 1 IMPLANT,EVERY 3 YEARS
     Route: 059
     Dates: start: 20171229

REACTIONS (3)
  - Dizziness [Unknown]
  - Menorrhagia [Unknown]
  - Headache [Unknown]

NARRATIVE: CASE EVENT DATE: 201801
